FAERS Safety Report 17431325 (Version 1)
Quarter: 2020Q1

REPORT INFORMATION
  Report Type: Spontaneous
  Country: US (occurrence: US)
  Receive Date: 20200218
  Receipt Date: 20200218
  Transmission Date: 20200409
  Serious: Yes (Hospitalization, Other)
  Sender: FDA-Public Use
  Company Number: US-SMITH AND NEPHEW, INC-2020SMT00011

PATIENT
  Sex: Male

DRUGS (4)
  1. COLLAGENASE SANTYL [Suspect]
     Active Substance: COLLAGENASE CLOSTRIDIUM HISTOLYTICUM
     Indication: WOUND NECROSIS
     Dosage: UNK
     Dates: start: 202001
  2. COLLAGENASE SANTYL [Suspect]
     Active Substance: COLLAGENASE CLOSTRIDIUM HISTOLYTICUM
     Indication: THERMAL BURN
     Dosage: UNK
  3. DAKINS FULL [Concomitant]
     Active Substance: SODIUM HYPOCHLORITE
  4. COLLAGENASE SANTYL [Suspect]
     Active Substance: COLLAGENASE CLOSTRIDIUM HISTOLYTICUM
     Indication: DECUBITUS ULCER

REACTIONS (3)
  - Hip fracture [Unknown]
  - Decubitus ulcer [Unknown]
  - Wound necrosis [Unknown]
